FAERS Safety Report 7308989-8 (Version None)
Quarter: 2011Q1

REPORT INFORMATION
  Report Type: 
  Country: None (occurrence: None)
  Receive Date: 20110211
  Receipt Date: 20110207
  Transmission Date: 20110831
  Serious: Yes (Hospitalization)
  Sender: FDA-Public Use
  Company Number: 2010SP010777

PATIENT
  Age: 30 Year
  Sex: Female
  Weight: 58.9676 kg

DRUGS (1)
  1. NUVARING [Suspect]
     Indication: CONTRACEPTION
     Dates: start: 20061001, end: 20070301

REACTIONS (4)
  - FIBRIN D DIMER INCREASED [None]
  - LABORATORY TEST INTERFERENCE [None]
  - PULMONARY EMBOLISM [None]
  - LUNG CONSOLIDATION [None]
